FAERS Safety Report 25479944 (Version 1)
Quarter: 2025Q2

REPORT INFORMATION
  Report Type: Spontaneous
  Country: US (occurrence: US)
  Receive Date: 20250625
  Receipt Date: 20250625
  Transmission Date: 20250717
  Serious: Yes (Hospitalization, Disabling)
  Sender: NOVO NORDISK
  Company Number: US-NOVOPROD-1458856

PATIENT
  Sex: Male

DRUGS (2)
  1. NOVOLOG [Suspect]
     Active Substance: INSULIN ASPART
     Indication: Product used for unknown indication
  2. LANTUS [Concomitant]
     Active Substance: INSULIN GLARGINE
     Indication: Product used for unknown indication

REACTIONS (5)
  - Perforated ulcer [Unknown]
  - Renal failure [Unknown]
  - Staphylococcal infection [Unknown]
  - Shoulder operation [Unknown]
  - Disability [Unknown]
